FAERS Safety Report 7079649-6 (Version None)
Quarter: 2010Q4

REPORT INFORMATION
  Report Type: 
  Country: None (occurrence: None)
  Receive Date: 20101102
  Receipt Date: 20101020
  Transmission Date: 20110411
  Serious: Yes (Other)
  Sender: FDA-Public Use
  Company Number: PHHY2010CA61696

PATIENT
  Sex: Male

DRUGS (5)
  1. ACLASTA [Suspect]
     Indication: OSTEOPOROSIS
     Dosage: 5 MG PER YEAR
     Route: 042
     Dates: start: 20080101
  2. CRESTOR [Concomitant]
  3. EZETROL [Concomitant]
  4. PREDNISONE [Concomitant]
  5. LASIX [Concomitant]

REACTIONS (2)
  - ARTHROPATHY [None]
  - LIGAMENT RUPTURE [None]
